FAERS Safety Report 8496211-9 (Version None)
Quarter: 2012Q3

REPORT INFORMATION
  Report Type: 
  Country: None (occurrence: None)
  Receive Date: 20120709
  Receipt Date: 20120702
  Transmission Date: 20120928
  Serious: Yes (Other)
  Sender: FDA-Public Use
  Company Number: US-JNJFOC-20120103460

PATIENT
  Sex: Female

DRUGS (2)
  1. NUCYNTA ER [Suspect]
     Indication: PAIN
     Dosage: TWICE DAILY
     Route: 048
     Dates: start: 20111201, end: 20111201
  2. MORPHINE SULFATE IMMEDIATE RELIEF [Concomitant]
     Indication: BREAKTHROUGH PAIN
     Route: 065

REACTIONS (4)
  - CONVULSION [None]
  - AMNESIA [None]
  - LOSS OF CONSCIOUSNESS [None]
  - DYSKINESIA [None]
